FAERS Safety Report 5176698-X (Version None)
Quarter: 2006Q4

REPORT INFORMATION
  Report Type: 
  Country: None (occurrence: None)
  Receive Date: 20061213
  Receipt Date: 20061213
  Transmission Date: 20070319
  Serious: Yes (Death, Other)
  Sender: FDA-Public Use
  Company Number: None

PATIENT
  Age: 18 Year

DRUGS (1)
  1. TUBERSOL [Suspect]
     Route: 023
     Dates: start: 20061205

REACTIONS (4)
  - ERYTHEMA [None]
  - PURULENT DISCHARGE [None]
  - SWELLING [None]
  - TENDERNESS [None]
